FAERS Safety Report 13356708 (Version 1)
Quarter: 2017Q1

REPORT INFORMATION
  Report Type: Report from Study
  Country: AU (occurrence: AU)
  Receive Date: 20170321
  Receipt Date: 20170321
  Transmission Date: 20170429
  Serious: Yes (Hospitalization, Other)
  Sender: FDA-Public Use
  Company Number: AU-GILEAD-2017-0262878

PATIENT
  Age: 59 Year
  Sex: Male

DRUGS (3)
  1. EMTRICITABINE/TENOFOVIR DISOPROXIL FUMARATE [Suspect]
     Active Substance: EMTRICITABINE\TENOFOVIR DISOPROXIL FUMARATE
     Indication: PROPHYLAXIS AGAINST HIV INFECTION
     Dosage: 1 DF, QD
     Route: 048
     Dates: start: 20160606, end: 20170220
  2. FAMVIR [Concomitant]
     Active Substance: FAMCICLOVIR
     Dosage: 250 MG, BID
     Route: 065
     Dates: start: 20060202
  3. CVG [Concomitant]
     Dosage: UNK
     Dates: start: 20120120

REACTIONS (4)
  - Haemorrhage urinary tract [Recovered/Resolved]
  - Haematuria [Recovered/Resolved]
  - Prostate infection [Recovered/Resolved]
  - Prostatic haemorrhage [Recovered/Resolved]

NARRATIVE: CASE EVENT DATE: 20170108
